FAERS Safety Report 16876736 (Version 2)
Quarter: 2019Q4

REPORT INFORMATION
  Report Type: Spontaneous
  Country: US (occurrence: US)
  Receive Date: 20191002
  Receipt Date: 20191113
  Transmission Date: 20200122
  Serious: No
  Sender: FDA-Public Use
  Company Number: US-ASTRAZENECA-2019SF27007

PATIENT
  Sex: Male

DRUGS (1)
  1. PULMICORT FLEXHALER [Suspect]
     Active Substance: BUDESONIDE
     Dosage: 90 MCG 4 PUFFS EVERY DAY
     Route: 055

REACTIONS (6)
  - Device failure [Unknown]
  - Product packaging quantity issue [Unknown]
  - Product dose omission [Unknown]
  - Dyspnoea [Unknown]
  - Ear disorder [Unknown]
  - Intentional product misuse [Unknown]
